FAERS Safety Report 9149554 (Version 1)
Quarter: 2013Q1

REPORT INFORMATION
  Report Type: Spontaneous
  Country: US (occurrence: None)
  Receive Date: 20130228
  Receipt Date: 20130228
  Transmission Date: 20140127
  Serious: Yes (Hospitalization)
  Sender: FDA-Public Use
  Company Number: None

PATIENT
  Age: 68 Year
  Sex: Male
  Weight: 103.4 kg

DRUGS (1)
  1. EFAVIRENZ/EMTRICITABINE/TENOFOVIR DISOPROXIL FUMARATE [Suspect]
     Indication: HIV INFECTION
     Dosage: 1 TAB EVERY DAY PO
     Route: 048
     Dates: start: 20121203, end: 20121217

REACTIONS (10)
  - Rash macular [None]
  - Pyrexia [None]
  - No therapeutic response [None]
  - Swollen tongue [None]
  - Dysphagia [None]
  - Local swelling [None]
  - Local swelling [None]
  - Throat tightness [None]
  - Dyspnoea [None]
  - Hypersensitivity [None]
